FAERS Safety Report 25919112 (Version 2)
Quarter: 2025Q4

REPORT INFORMATION
  Report Type: Spontaneous
  Country: US (occurrence: US)
  Receive Date: 20251014
  Receipt Date: 20251027
  Transmission Date: 20260117
  Serious: Yes (Other)
  Sender: NOVARTIS
  Company Number: US-002147023-NVSC2025US154045

PATIENT
  Age: 60 Year
  Sex: Female
  Weight: 80.74 kg

DRUGS (2)
  1. LUTATHERA [Suspect]
     Active Substance: LUTETIUM OXODOTREOTIDE LU-177
     Indication: Gastroenteropancreatic neuroendocrine tumour disease
     Dosage: UNK (STANDARD DOSE 1)
     Route: 042
     Dates: start: 20250806
  2. LUTATHERA [Suspect]
     Active Substance: LUTETIUM OXODOTREOTIDE LU-177
     Dosage: UNK (STANDARD DOSE 2)
     Route: 042
     Dates: start: 20251001

REACTIONS (10)
  - Carcinoid syndrome [Recovered/Resolved]
  - Carcinoid syndrome [Recovered/Resolved]
  - Lethargy [Recovered/Resolved]
  - Hypotension [Recovered/Resolved]
  - Diarrhoea [Recovered/Resolved]
  - Nausea [Recovered/Resolved]
  - Lethargy [Recovered/Resolved]
  - Hypoglycaemia [Recovered/Resolved]
  - Diarrhoea [Recovered/Resolved]
  - Nausea [Recovered/Resolved]

NARRATIVE: CASE EVENT DATE: 20250806
